FAERS Safety Report 4905694-X (Version None)
Quarter: 2006Q1

REPORT INFORMATION
  Report Type: 
  Country: None (occurrence: None)
  Receive Date: 20060113
  Receipt Date: 20050725
  Transmission Date: 20060701
  Serious: Yes (Other)
  Sender: FDA-Public Use
  Company Number: HQWYE533326JUL05

PATIENT
  Sex: Female

DRUGS (6)
  1. PREMPRO [Suspect]
  2. CYCRIN [Suspect]
  3. ESTRATEST [Suspect]
  4. MEDROXYPROGESTERONE [Suspect]
  5. NORETHINDRONE ACETATE [Suspect]
  6. PREMARIN [Suspect]

REACTIONS (1)
  - BREAST CANCER [None]
